FAERS Safety Report 6222708-8 (Version None)
Quarter: 2009Q2

REPORT INFORMATION
  Report Type: 
  Country: None (occurrence: None)
  Receive Date: 20090609
  Receipt Date: 20090609
  Transmission Date: 20091009
  Serious: Yes (Hospitalization, Other)
  Sender: FDA-Public Use
  Company Number: None

PATIENT
  Sex: Female
  Weight: 65.7716 kg

DRUGS (2)
  1. RIBAVIRIN [Suspect]
     Indication: HEPATITIS C
     Dosage: 1000 MG DAILY 2 CAP AM/ 3 CAP PM PO
     Route: 048
     Dates: start: 20090601
  2. PEG-INTRON [Suspect]
     Indication: HEPATITIS C
     Dosage: 120 MCG WEEKLY WEEKLY SQ
     Route: 058
     Dates: start: 20090601

REACTIONS (3)
  - CHILLS [None]
  - DISORIENTATION [None]
  - PYREXIA [None]
